FAERS Safety Report 8619066-8 (Version None)
Quarter: 2012Q3

REPORT INFORMATION
  Report Type: 
  Country: None (occurrence: None)
  Receive Date: 20120824
  Receipt Date: 20120816
  Transmission Date: 20120928
  Serious: Yes (Hospitalization, Other)
  Sender: FDA-Public Use
  Company Number: US-BAYER-2012-078595

PATIENT
  Age: 19 Year
  Sex: Female

DRUGS (9)
  1. MOTRIN [Concomitant]
     Dosage: UNK
     Route: 048
     Dates: start: 20101103
  2. DROSPIRENONE AND ETHINYL ESTRADIOL [Suspect]
     Dosage: UNK
     Dates: start: 20070101
  3. YAZ [Suspect]
     Dosage: UNK
     Dates: start: 20070101
  4. AZITHROMYCIN [Concomitant]
     Dosage: UNK
     Route: 048
     Dates: start: 20101028
  5. TYLENOL [Concomitant]
     Indication: CHEST PAIN
     Dosage: UNK
     Route: 048
     Dates: start: 20101028
  6. FLUCONAZOLE [Concomitant]
  7. MIDRIN [Concomitant]
     Dosage: UNK
     Route: 048
     Dates: start: 20101103
  8. YASMIN [Suspect]
     Dosage: UNK
     Dates: start: 20070101
  9. TYLENOL W/ CODEINE NO. 3 [Concomitant]
     Dosage: UNK
     Route: 048
     Dates: start: 20101028

REACTIONS (10)
  - PULMONARY EMBOLISM [None]
  - ANHEDONIA [None]
  - FEAR [None]
  - PAIN [None]
  - CEREBROVASCULAR ACCIDENT [None]
  - INJURY [None]
  - DEEP VEIN THROMBOSIS [None]
  - ANXIETY [None]
  - MYOCARDIAL INFARCTION [None]
  - GALLBLADDER DISORDER [None]
